FAERS Safety Report 18890637 (Version 1)
Quarter: 2021Q1

REPORT INFORMATION
  Report Type: Report from Study
  Country: None (occurrence: UY)
  Receive Date: 20210215
  Receipt Date: 20210215
  Transmission Date: 20210420
  Serious: Yes (Other)
  Sender: FDA-Public Use
  Company Number: UY-ABBVIE-20K-168-3550929-00

PATIENT
  Sex: Female

DRUGS (1)
  1. HUMIRA [Suspect]
     Active Substance: ADALIMUMAB
     Indication: RHEUMATOID ARTHRITIS
     Route: 058
     Dates: start: 20150410

REACTIONS (7)
  - Eye irritation [Not Recovered/Not Resolved]
  - Dry eye [Recovering/Resolving]
  - Eye inflammation [Recovering/Resolving]
  - Photophobia [Recovering/Resolving]
  - Abnormal sensation in eye [Recovering/Resolving]
  - Pruritus [Recovering/Resolving]
  - Anaemia [Recovering/Resolving]

NARRATIVE: CASE EVENT DATE: 2020
